FAERS Safety Report 25942862 (Version 2)
Quarter: 2025Q4

REPORT INFORMATION
  Report Type: Spontaneous
  Country: US (occurrence: US)
  Receive Date: 20251021
  Receipt Date: 20251029
  Transmission Date: 20260117
  Serious: No
  Sender: BAUSCH AND LOMB
  Company Number: US-BAUSCHBL-2025BNL029917

PATIENT
  Age: 75 Year
  Sex: Male

DRUGS (4)
  1. MIEBO [Suspect]
     Active Substance: PERFLUOROHEXYLOCTANE
     Indication: Dry eye
     Dosage: PRESCRIBED AS 1 DROP IN EACH EYE 4 TIMES A DAY
     Route: 047
     Dates: start: 202509
  2. XIIDRA [Suspect]
     Active Substance: LIFITEGRAST
     Indication: Dry eye
     Route: 047
     Dates: end: 202509
  3. DIETARY SUPPLEMENT [Suspect]
     Active Substance: DIETARY SUPPLEMENT
     Indication: Dry eye
     Dates: start: 202508
  4. RETAINE MGD [Concomitant]
     Active Substance: LIGHT MINERAL OIL\MINERAL OIL
     Indication: Dry eye

REACTIONS (8)
  - Pain [Unknown]
  - Vision blurred [Recovered/Resolved]
  - Therapeutic product effect decreased [Unknown]
  - Extra dose administered [Unknown]
  - Exposure via skin contact [Unknown]
  - Accidental exposure to product [Unknown]
  - Product use issue [Unknown]
  - Product design issue [Unknown]

NARRATIVE: CASE EVENT DATE: 20250101
